FAERS Safety Report 7345121-9 (Version None)
Quarter: 2011Q1

REPORT INFORMATION
  Report Type: 
  Country: None (occurrence: None)
  Receive Date: 20110310
  Receipt Date: 20110302
  Transmission Date: 20110831
  Serious: Yes (Hospitalization)
  Sender: FDA-Public Use
  Company Number: CA-ELI_LILLY_AND_COMPANY-CA201103001059

PATIENT
  Age: 32 Year
  Sex: Female

DRUGS (7)
  1. METOCLOPRAMIDE HCL [Concomitant]
  2. PANTOLOC /01263202/ [Concomitant]
  3. HUMATROPE [Suspect]
     Indication: GROWTH HORMONE DEFICIENCY
     Dosage: 0.2 MG, DAILY (1/D)
  4. PREMARIN [Concomitant]
  5. PROVERA [Concomitant]
  6. DICLECTIN [Concomitant]
  7. CETROTIDE [Concomitant]

REACTIONS (2)
  - FATIGUE [None]
  - HOSPITALISATION [None]
